FAERS Safety Report 4367865-3 (Version None)
Quarter: 2004Q2

REPORT INFORMATION
  Report Type: 
  Country: None (occurrence: None)
  Receive Date: 20040601
  Receipt Date: 20040601
  Transmission Date: 20050107
  Serious: Yes (Other)
  Sender: FDA-Public Use
  Company Number: None

PATIENT
  Age: 83 Year
  Sex: Male
  Weight: 77.1115 kg

DRUGS (1)
  1. OCUVITE [Suspect]
     Indication: MACULAR DEGENERATION
     Dates: start: 20031201, end: 20040401

REACTIONS (4)
  - ASTHENIA [None]
  - ATAXIA [None]
  - HYPERVITAMINOSIS [None]
  - SKIN DISCOLOURATION [None]
